FAERS Safety Report 6899257-7 (Version None)
Quarter: 2010Q3

REPORT INFORMATION
  Report Type: 
  Country: None (occurrence: None)
  Receive Date: 20100802
  Receipt Date: 20080215
  Transmission Date: 20110219
  Serious: No
  Sender: FDA-Public Use
  Company Number: US-PFIZER INC-2007108718

PATIENT
  Sex: Female
  Weight: 81.19 kg

DRUGS (8)
  1. LYRICA [Suspect]
     Indication: FIBROMYALGIA
     Route: 048
     Dates: start: 20060614, end: 20070202
  2. LYRICA [Suspect]
     Indication: NEUROPATHY PERIPHERAL
  3. DARVOCET [Suspect]
     Indication: FIBROMYALGIA
     Route: 048
     Dates: start: 20040706, end: 20040806
  4. DARVOCET [Suspect]
     Indication: BREAST PAIN
  5. WARFARIN SODIUM [Concomitant]
  6. LISINOPRIL [Concomitant]
  7. ATENOLOL [Concomitant]
  8. METFORMIN HCL [Concomitant]

REACTIONS (2)
  - DRUG INEFFECTIVE [None]
  - NAUSEA [None]
